FAERS Safety Report 11339728 (Version 1)
Quarter: 2015Q3

REPORT INFORMATION
  Report Type: Spontaneous
  Country: US (occurrence: None)
  Receive Date: 20150804
  Receipt Date: 20150804
  Transmission Date: 20151125
  Serious: No
  Sender: FDA-Public Use
  Company Number: None

PATIENT
  Age: 47 Year
  Sex: Female
  Weight: 81.65 kg

DRUGS (1)
  1. HONEST SUNSCREEN BROAD SPECTRUM SPF 30 [Suspect]
     Active Substance: ZINC OXIDE
     Indication: TANNING

REACTIONS (1)
  - Sunburn [None]

NARRATIVE: CASE EVENT DATE: 20150704
